FAERS Safety Report 17654138 (Version 1)
Quarter: 2020Q2

REPORT INFORMATION
  Report Type: Spontaneous
  Country: CH (occurrence: CH)
  Receive Date: 20200410
  Receipt Date: 20200410
  Transmission Date: 20200713
  Serious: Yes (Congenital Anomaly, Other)
  Sender: FDA-Public Use
  Company Number: CH-MICRO LABS LIMITED-ML2020-01165

PATIENT

DRUGS (5)
  1. METOCLOPRAMIDE. [Suspect]
     Active Substance: METOCLOPRAMIDE
     Route: 064
  2. VENLAFAXINE [Suspect]
     Active Substance: VENLAFAXINE HYDROCHLORIDE
     Route: 064
  3. CLOTIAPINE [Suspect]
     Active Substance: CLOTHIAPINE
     Route: 064
  4. MEFENAMIC ACID. [Suspect]
     Active Substance: MEFENAMIC ACID
     Route: 064
  5. PROMAZINE [Suspect]
     Active Substance: PROMAZINE
     Route: 064

REACTIONS (2)
  - Ectrodactyly [Unknown]
  - Foetal exposure during pregnancy [Unknown]
